FAERS Safety Report 14424284 (Version 2)
Quarter: 2018Q1

REPORT INFORMATION
  Report Type: Spontaneous
  Country: SE (occurrence: SE)
  Receive Date: 20180123
  Receipt Date: 20180130
  Transmission Date: 20180509
  Serious: Yes (Disabling, Other)
  Sender: FDA-Public Use
  Company Number: SE-NOVOPROD-581262

PATIENT
  Age: 18 Year
  Sex: Male

DRUGS (21)
  1. VENTOLINE                          /00139501/ [Concomitant]
     Active Substance: ALBUTEROL
     Dosage: 2 MG AS NECESSARY
     Route: 055
  2. MILDISON LIPID [Concomitant]
     Dosage: 1 %, QD
  3. ALVEDON [Concomitant]
     Active Substance: ACETAMINOPHEN
     Dosage: UNK
  4. NORDITROPIN [Suspect]
     Active Substance: SOMATROPIN
     Indication: GROWTH RETARDATION
     Dosage: 0.9 MG, QD
     Route: 058
     Dates: start: 20150311, end: 20161207
  5. BUDESONIDE. [Concomitant]
     Active Substance: BUDESONIDE
  6. ELOCON [Concomitant]
     Active Substance: MOMETASONE FUROATE
  7. SODIUM CHLORIDE. [Concomitant]
     Active Substance: SODIUM CHLORIDE
  8. ISOPTO-MAXIDEX [Concomitant]
     Dosage: 1 MG, QD
     Route: 057
  9. NASONEX [Concomitant]
     Active Substance: MOMETASONE FUROATE
     Dosage: UNK
  10. VENTOLINE                          /00139501/ [Concomitant]
     Active Substance: ALBUTEROL
     Dosage: 5 MG
     Route: 055
  11. TRILEPTAL [Concomitant]
     Active Substance: OXCARBAZEPINE
     Dosage: 60 MG, QD
     Route: 048
  12. STESOLID [Concomitant]
     Active Substance: DIAZEPAM
     Dosage: 10 MG
     Route: 054
  13. LEVAXIN [Concomitant]
     Active Substance: LEVOTHYROXINE SODIUM
     Dosage: 150 ?G, QD
     Route: 048
  14. ISOPTO-ATROPIN [Concomitant]
     Dosage: 1 %, QD
     Route: 057
  15. LEVETIRACETAM. [Concomitant]
     Active Substance: LEVETIRACETAM
     Dosage: 100 MG/ML
  16. BOTOX [Concomitant]
     Active Substance: ONABOTULINUMTOXINA
     Dosage: UNK
  17. TESTOVIRON DEPOT [Concomitant]
     Active Substance: TESTOSTERONE ENANTHATE
     Dosage: UNK
  18. VITAMIN D                          /00107901/ [Concomitant]
     Active Substance: ERGOCALCIFEROL
  19. ATROVENT [Concomitant]
     Active Substance: IPRATROPIUM BROMIDE
     Dosage: 0.25 MG/ML AS NEEDED
     Route: 055
  20. LOSEC [Concomitant]
     Active Substance: OMEPRAZOLE
     Dosage: 10 MG, QD
     Route: 048
  21. BACTRIM [Concomitant]
     Active Substance: SULFAMETHOXAZOLE\TRIMETHOPRIM
     Dosage: 40 MG
     Route: 048

REACTIONS (1)
  - Retinal detachment [Recovered/Resolved with Sequelae]

NARRATIVE: CASE EVENT DATE: 2016
